FAERS Safety Report 4679604-7 (Version None)
Quarter: 2005Q2

REPORT INFORMATION
  Report Type: 
  Country: None (occurrence: None)
  Receive Date: 20050602
  Receipt Date: 20050518
  Transmission Date: 20051028
  Serious: Yes (Life-Threatening, Hospitalization)
  Sender: FDA-Public Use
  Company Number: NL-BOEHRINGER INGELHEIM PHARMACEUTICALS, INC.-2005-NL-00119NL

PATIENT
  Sex: Female

DRUGS (5)
  1. MOVICOX 15 MG TABLETS [Suspect]
     Indication: OSTEOARTHRITIS
     Dates: start: 20050321, end: 20050330
  2. ACIDIUM ACETYLSALICYLICUM CARDIO TABLET 80MG [Concomitant]
     Dosage: DOSE NOT CHANGED
     Dates: start: 20040308
  3. OMEPRAZOLIM CAPSULE MSR 20MG [Concomitant]
     Dosage: DOSE NOT CHANGED
     Dates: start: 20030602
  4. LOREMETAZEPAMUM TABLET 1MG [Concomitant]
     Dosage: DOSE NOT CHANGED
     Dates: start: 20030926
  5. THYRAX DUOTAB TABLET 0.025MG [Concomitant]
     Dosage: DOSE NOT CHANGED
     Dates: start: 20040213

REACTIONS (2)
  - ANGINA PECTORIS [None]
  - MYOCARDIAL INFARCTION [None]
